FAERS Safety Report 14505191 (Version 6)
Quarter: 2018Q2

REPORT INFORMATION
  Report Type: Spontaneous
  Country: JP (occurrence: JP)
  Receive Date: 20180208
  Receipt Date: 20180523
  Transmission Date: 20180711
  Serious: Yes (Life-Threatening, Other)
  Sender: FDA-Public Use
  Company Number: JP-PFIZER INC-2018055366

PATIENT
  Age: 68 Year
  Sex: Female

DRUGS (7)
  1. ETOPOSIDE. [Suspect]
     Active Substance: ETOPOSIDE
     Indication: ADRENOCORTICAL CARCINOMA
     Dosage: 100 MG/M2, CYCLIC (DAY 5 TO 7 EVERY 4 WEEKS)
  2. MITOTANE [Suspect]
     Active Substance: MITOTANE
     Dosage: 7.5 G, DAILY (MAINTAINED EVERY DAY)
     Route: 048
  3. MITOTANE [Suspect]
     Active Substance: MITOTANE
     Dosage: 7.5 G, DAILY (EVERY DAY)
     Route: 048
  4. MITOTANE [Suspect]
     Active Substance: MITOTANE
     Dosage: UNK (DOSE WAS REDUCED TO 75% WITH THE SECOND COURSE)
     Route: 048
  5. DOXORUBICIN HCL [Suspect]
     Active Substance: DOXORUBICIN HYDROCHLORIDE
     Indication: ADRENOCORTICAL CARCINOMA
     Dosage: 20 MG/M2, CYCLIC (DAY 1, 8 EVERY 4 WEEKS)
  6. CISPLATIN. [Suspect]
     Active Substance: CISPLATIN
     Indication: ADRENOCORTICAL CARCINOMA
     Dosage: 40 MG/M2, CYCLIC (DAY 1, 8 EVERY 4 WEEKS)
  7. MITOTANE [Suspect]
     Active Substance: MITOTANE
     Indication: ADRENOCORTICAL CARCINOMA
     Dosage: 1.5 G, DAILY (EVERY DAY GRADUALLY INCREASED)
     Route: 048

REACTIONS (4)
  - Adrenal insufficiency [Unknown]
  - Neutropenia [Unknown]
  - Febrile neutropenia [Unknown]
  - Hyponatraemia [Unknown]
